FAERS Safety Report 16096742 (Version 3)
Quarter: 2019Q2

REPORT INFORMATION
  Report Type: Spontaneous
  Country: US (occurrence: US)
  Receive Date: 20190320
  Receipt Date: 20190613
  Transmission Date: 20190711
  Serious: No
  Sender: FDA-Public Use
  Company Number: US-PFIZER INC-2019013494

PATIENT
  Age: 55 Year
  Sex: Female

DRUGS (3)
  1. LYRICA [Suspect]
     Active Substance: PREGABALIN
     Indication: FIBROMYALGIA
     Dosage: 225 MG, 2X/DAY
     Route: 048
     Dates: start: 20181018
  2. LYRICA [Suspect]
     Active Substance: PREGABALIN
     Indication: MYOSITIS
  3. LYRICA [Suspect]
     Active Substance: PREGABALIN
     Indication: MYALGIA
     Dosage: 225 MG, 2X/DAY (MAX: 600 MG/DAY)
     Route: 048
     Dates: start: 20190610

REACTIONS (4)
  - Malaise [Unknown]
  - Feeling abnormal [Unknown]
  - Influenza [Unknown]
  - Memory impairment [Unknown]
